FAERS Safety Report 4685450-0 (Version None)
Quarter: 2005Q2

REPORT INFORMATION
  Report Type: 
  Country: None (occurrence: None)
  Receive Date: 20050603
  Receipt Date: 20050519
  Transmission Date: 20051028
  Serious: Yes (Death)
  Sender: FDA-Public Use
  Company Number: PHBS2005BE07043

PATIENT
  Age: 85 Year
  Sex: Male

DRUGS (4)
  1. VISUDYNE [Suspect]
     Indication: MACULAR DEGENERATION
     Dates: start: 20040405, end: 20050405
  2. LEXOTAN [Concomitant]
  3. VITAMINS [Concomitant]
  4. PRANOX [Concomitant]

REACTIONS (4)
  - ANXIETY [None]
  - COMPLETED SUICIDE [None]
  - EYE HAEMORRHAGE [None]
  - PAIN IN EXTREMITY [None]
